FAERS Safety Report 23102462 (Version 2)
Quarter: 2023Q4

REPORT INFORMATION
  Report Type: Spontaneous
  Country: DE (occurrence: DE)
  Receive Date: 20231025
  Receipt Date: 20231031
  Transmission Date: 20240110
  Serious: Yes (Hospitalization)
  Sender: FDA-Public Use
  Company Number: DE-002147023-NVSC2023DE227762

PATIENT
  Sex: Female

DRUGS (1)
  1. ILARIS [Suspect]
     Active Substance: CANAKINUMAB
     Indication: Product used for unknown indication
     Dosage: 4 MG/KG OF BODY WEIGHT, (EVERY 8 WEEK) (FIRST ILARIS INJECTION)
     Route: 065
     Dates: start: 201412

REACTIONS (4)
  - Eating disorder [Not Recovered/Not Resolved]
  - Decreased appetite [Unknown]
  - Food aversion [Unknown]
  - Blood creatine phosphokinase increased [Unknown]

NARRATIVE: CASE EVENT DATE: 20230801
